FAERS Safety Report 5573851-8 (Version None)
Quarter: 2007Q4

REPORT INFORMATION
  Report Type: 
  Country: None (occurrence: None)
  Receive Date: 20071226
  Receipt Date: 20071210
  Transmission Date: 20080405
  Serious: Yes (Other)
  Sender: FDA-Public Use
  Company Number: JP-ASTRAZENECA-2007AP08079

PATIENT
  Age: 52 Year
  Sex: Male

DRUGS (2)
  1. SEROQUEL [Suspect]
     Route: 048
  2. LITHIUM CARBONATE [Concomitant]

REACTIONS (6)
  - DYSLALIA [None]
  - DYSPHAGIA [None]
  - NEUROLEPTIC MALIGNANT SYNDROME [None]
  - ORAL DISCHARGE [None]
  - PNEUMONIA ASPIRATION [None]
  - SLEEP APNOEA SYNDROME [None]
